FAERS Safety Report 25455518 (Version 1)
Quarter: 2025Q2

REPORT INFORMATION
  Report Type: Spontaneous
  Country: CA (occurrence: CA)
  Receive Date: 20250619
  Receipt Date: 20250619
  Transmission Date: 20250716
  Serious: Yes (Other)
  Sender: CSL BEHRING
  Company Number: CA-BEH-2025209329

PATIENT
  Age: 72 Year
  Sex: Female

DRUGS (9)
  1. HUMAN IMMUNOGLOBULIN G [Suspect]
     Active Substance: HUMAN IMMUNOGLOBULIN G
     Indication: Product used for unknown indication
     Route: 042
  2. AMITRIPTYLINE [Concomitant]
     Active Substance: AMITRIPTYLINE
  3. ESTRACE [Concomitant]
     Active Substance: ESTRADIOL
  4. HYDROMORPHONE [Concomitant]
     Active Substance: HYDROMORPHONE
  5. PREDNISONE [Concomitant]
     Active Substance: PREDNISONE
  6. PROLIA [Concomitant]
     Active Substance: DENOSUMAB
  7. PROMETRIUM [Concomitant]
     Active Substance: PROGESTERONE
     Route: 030
  8. RABEPRAZOLE [Concomitant]
     Active Substance: RABEPRAZOLE
  9. ZOPICLONE [Concomitant]
     Active Substance: ZOPICLONE

REACTIONS (2)
  - Erythema [Recovered/Resolved]
  - Urticaria [Recovered/Resolved]
